FAERS Safety Report 9562659 (Version 2)
Quarter: 2014Q1

REPORT INFORMATION
  Report Type: Spontaneous
  Country: US (occurrence: US)
  Receive Date: 20130927
  Receipt Date: 20140121
  Transmission Date: 20141002
  Serious: No
  Sender: FDA-Public Use
  Company Number: US-PFIZER INC-2013274201

PATIENT
  Age: 73 Year
  Sex: Female
  Weight: 77.1 kg

DRUGS (3)
  1. XALATAN [Suspect]
     Indication: GLAUCOMA
     Dosage: ONE DROP IN EACH EYE, 1X/DAY
     Route: 047
  2. XALATAN [Suspect]
     Dosage: UNK
  3. ADVAIR [Concomitant]
     Indication: CARDIAC DISORDER
     Dosage: UNK

REACTIONS (3)
  - Eye pain [Recovered/Resolved]
  - Product lot number issue [Unknown]
  - Product taste abnormal [Recovered/Resolved]
